FAERS Safety Report 4712967-2 (Version None)
Quarter: 2005Q3

REPORT INFORMATION
  Report Type: 
  Country: None (occurrence: None)
  Receive Date: 20050711
  Receipt Date: 20050629
  Transmission Date: 20060218
  Serious: Yes (Other)
  Sender: FDA-Public Use
  Company Number: 2005073406

PATIENT
  Age: 31 Year
  Sex: Female

DRUGS (2)
  1. MINOXIDIL [Suspect]
     Indication: ALOPECIA
     Dosage: 1 ML BID, TOPICAL
     Route: 061
     Dates: start: 20050101
  2. JODTHYROX (LEVOTHYROXINE SODIUM, POTASSIUM IODIDE) [Suspect]
     Indication: HYPOTHYROIDISM
     Dosage: 50 MG QD, ORAL
     Route: 048
     Dates: start: 20050201, end: 20050615

REACTIONS (5)
  - ASTHENIA [None]
  - CARDIOVASCULAR DISORDER [None]
  - CHEST DISCOMFORT [None]
  - DIZZINESS [None]
  - FATIGUE [None]
